FAERS Safety Report 6132745-X (Version None)
Quarter: 2009Q1

REPORT INFORMATION
  Report Type: 
  Country: None (occurrence: None)
  Receive Date: 20090324
  Receipt Date: 20090316
  Transmission Date: 20090719
  Serious: Yes (Hospitalization)
  Sender: FDA-Public Use
  Company Number: 000511

PATIENT
  Age: 58 Year
  Sex: Male

DRUGS (3)
  1. LACOSAMIDE [Suspect]
     Indication: EPILEPSY
     Dosage: TABLET 200 MG BID ORAL
     Route: 048
     Dates: start: 20030609
  2. LAMICTAL [Concomitant]
  3. OXCARBAZEPINE [Concomitant]

REACTIONS (1)
  - ATRIAL FIBRILLATION [None]
